FAERS Safety Report 6555077-4 (Version None)
Quarter: 2010Q1

REPORT INFORMATION
  Report Type: 
  Country: None (occurrence: None)
  Receive Date: 20100126
  Receipt Date: 20100126
  Transmission Date: 20100710
  Serious: Yes (Other)
  Sender: FDA-Public Use
  Company Number: None

PATIENT
  Age: 50 Year
  Sex: Female
  Weight: 78.4723 kg

DRUGS (2)
  1. MOVIPREP [Suspect]
     Indication: COLONOSCOPY
     Dosage: SEE ENCLOSED IM
     Dates: start: 20090901
  2. OSMOPREP [Suspect]
     Dates: start: 20090608, end: 20090610

REACTIONS (4)
  - CHILLS [None]
  - HEADACHE [None]
  - TREMOR [None]
  - VOMITING [None]
